FAERS Safety Report 23991297 (Version 6)
Quarter: 2025Q2

REPORT INFORMATION
  Report Type: Other
  Country: US (occurrence: US)
  Receive Date: 20240619
  Receipt Date: 20250401
  Transmission Date: 20250716
  Serious: Yes (Other)
  Sender: TRAVERE THERAPEUTICS
  Company Number: US-TRAVERE-2024TVT00531

PATIENT
  Age: 61 Year
  Sex: Female

DRUGS (3)
  1. FILSPARI [Suspect]
     Active Substance: SPARSENTAN
     Indication: Chronic kidney disease
     Route: 048
  2. FILSPARI [Suspect]
     Active Substance: SPARSENTAN
     Indication: Proteinuria
     Route: 048
     Dates: start: 20240529
  3. FILSPARI [Suspect]
     Active Substance: SPARSENTAN
     Indication: IgA nephropathy
     Route: 048
     Dates: start: 20241104

REACTIONS (9)
  - Glomerular filtration rate decreased [Unknown]
  - Leg amputation [Recovering/Resolving]
  - Urinary tract infection [Unknown]
  - Abdominal pain upper [Recovered/Resolved]
  - Nausea [Recovered/Resolved]
  - Vomiting [Recovered/Resolved]
  - Diarrhoea [Recovered/Resolved]
  - Wrong technique in product usage process [Unknown]
  - Drug intolerance [Unknown]

NARRATIVE: CASE EVENT DATE: 20241031
